FAERS Safety Report 8460311-X (Version None)
Quarter: 2012Q2

REPORT INFORMATION
  Report Type: 
  Country: None (occurrence: None)
  Receive Date: 20120622
  Receipt Date: 20120619
  Transmission Date: 20120825
  Serious: No
  Sender: FDA-Public Use
  Company Number: US-B.I. PHARMACEUTICALS,INC./RIDGEFIELD-2012-BP-14019BP

PATIENT
  Sex: Female

DRUGS (7)
  1. SPIRIVA [Suspect]
     Indication: CHRONIC OBSTRUCTIVE PULMONARY DISEASE
     Dosage: 18 MCG
     Route: 055
     Dates: start: 19920101
  2. IBUPROFEN [Concomitant]
     Indication: ANALGESIC THERAPY
     Dosage: 1600 MG
     Route: 048
  3. LIPO-FLAVONOID [Concomitant]
     Indication: DIZZINESS
     Route: 048
  4. PROAIR HFA [Concomitant]
     Indication: CHRONIC OBSTRUCTIVE PULMONARY DISEASE
     Dosage: 4 PUF
     Route: 055
  5. FUROSEMIDE [Concomitant]
     Indication: FLUID RETENTION
     Route: 048
  6. RANITIDINE [Concomitant]
     Indication: GASTROOESOPHAGEAL REFLUX DISEASE
     Dosage: 600 MG
     Route: 048
  7. TRAMADOL HCL [Concomitant]
     Indication: BACK PAIN
     Route: 048

REACTIONS (1)
  - PULMONARY CONGESTION [None]
